FAERS Safety Report 11038442 (Version 1)
Quarter: 2015Q2

REPORT INFORMATION
  Report Type: Spontaneous
  Country: TR (occurrence: TR)
  Receive Date: 20150416
  Receipt Date: 20150416
  Transmission Date: 20150821
  Serious: Yes (Hospitalization)
  Sender: FDA-Public Use
  Company Number: TR-ELI_LILLY_AND_COMPANY-TR201504004276

PATIENT
  Age: 21 Year
  Sex: Male

DRUGS (5)
  1. OLANZAPINE. [Suspect]
     Active Substance: OLANZAPINE
     Indication: BORDERLINE PERSONALITY DISORDER
     Dosage: 5 MG, QD
  2. OLANZAPINE. [Interacting]
     Active Substance: OLANZAPINE
     Indication: ANXIETY DISORDER
  3. ESCITALOPRAM [Interacting]
     Active Substance: ESCITALOPRAM OXALATE
     Indication: BORDERLINE PERSONALITY DISORDER
     Dosage: 20 MG, QD
  4. ESCITALOPRAM [Interacting]
     Active Substance: ESCITALOPRAM OXALATE
     Indication: ANXIETY DISORDER
  5. CANNABIS [Interacting]
     Active Substance: CANNABIS SATIVA SUBSP. INDICA TOP
     Indication: PRODUCT USED FOR UNKNOWN INDICATION
     Route: 065

REACTIONS (2)
  - Drug interaction [Recovered/Resolved]
  - Delirium [Recovered/Resolved]
